FAERS Safety Report 9109490 (Version 3)
Quarter: 2019Q2

REPORT INFORMATION
  Report Type: Spontaneous
  Country: HU (occurrence: HU)
  Receive Date: 20130222
  Receipt Date: 20190611
  Transmission Date: 20190711
  Serious: Yes (Other)
  Sender: FDA-Public Use
  Company Number: PHHY2013HU017555

PATIENT
  Age: 46 Year
  Sex: Female

DRUGS (3)
  1. AMOXICILLIN-CLAVULANIC ACID [Suspect]
     Active Substance: AMOXICILLIN\CLAVULANIC ACID
     Indication: ERYSIPELAS
     Dosage: 625 MG, TID
     Route: 048
  2. AMOXICILLIN-CLAVULANIC ACID [Suspect]
     Active Substance: AMOXICILLIN\CLAVULANIC ACID
     Dosage: 375 MG, QD
     Route: 048
  3. AMOXICILLIN-CLAVULANIC ACID [Suspect]
     Active Substance: AMOXICILLIN\CLAVULANIC ACID
     Dosage: 1500 MG, QD
     Route: 048

REACTIONS (11)
  - Drug ineffective [Unknown]
  - Soft tissue necrosis [Unknown]
  - Rash pustular [Unknown]
  - Oedema [Unknown]
  - Blister [Unknown]
  - Vascular occlusion [Unknown]
  - Necrotising fasciitis [Unknown]
  - Skin discolouration [Unknown]
  - Wound [Unknown]
  - Leukocytosis [Unknown]
  - Thrombocytosis [Unknown]
